FAERS Safety Report 7166121 (Version 2)
Quarter: 2013Q2

REPORT INFORMATION
  Report Type: Spontaneous
  Country: US (occurrence: None)
  Receive Date: 20091020
  Receipt Date: 20130523
  Transmission Date: 20140414
  Serious: Yes (Hospitalization)
  Sender: FDA-Public Use
  Company Number: TPA2009A03133

PATIENT
  Age: 53 Year
  Sex: Male
  Weight: 67.3 kg

DRUGS (5)
  1. PIOGLITAZONE HYDROCHLORIDE [Suspect]
     Indication: RHEUMATOID ARTHRITIS
     Route: 048
     Dates: start: 20090803, end: 20090911
  2. ENBREL (ETANERCEPT) [Concomitant]
  3. PLAQUENIL (HYDROXYCHLOROQUINE SULFATE) / ORAL / TABLET, FILM COATED / 200 MILLIGRAM(S) [Concomitant]
  4. SYNTHROID (LEVOTHYROXINE SODIUM) [Concomitant]
  5. METHOTREXATE (METHOTREXATE) [Concomitant]

REACTIONS (4)
  - PALPITATIONS [None]
  - BLOOD PRESSURE INCREASED [None]
  - AGITATION [None]
  - Tachycardia [None]
